FAERS Safety Report 25611999 (Version 1)
Quarter: 2025Q3

REPORT INFORMATION
  Report Type: Spontaneous
  Country: EU (occurrence: EU)
  Receive Date: 20250728
  Receipt Date: 20250728
  Transmission Date: 20251020
  Serious: Yes (Hospitalization, Other)
  Sender: BAYER HEALTHCARE PHARMACEUTICALS INC.
  Company Number: EU-BAYER-2025A098046

PATIENT
  Age: 49 Year
  Sex: Female

DRUGS (1)
  1. DIENOGEST\ETHINYL ESTRADIOL [Suspect]
     Active Substance: DIENOGEST\ETHINYL ESTRADIOL
     Route: 048
     Dates: start: 202408

REACTIONS (3)
  - Subclavian vein thrombosis [None]
  - Pulmonary embolism [None]
  - Thoracic outlet syndrome [None]

NARRATIVE: CASE EVENT DATE: 20250102
